FAERS Safety Report 9119154 (Version 2)
Quarter: 2013Q2

REPORT INFORMATION
  Report Type: Spontaneous
  Country: US (occurrence: US)
  Receive Date: 20130226
  Receipt Date: 20130405
  Transmission Date: 20140414
  Serious: No
  Sender: FDA-Public Use
  Company Number: US-BIOGENIDEC-2013BI017539

PATIENT
  Sex: Female

DRUGS (1)
  1. TYSABRI [Suspect]
     Indication: MULTIPLE SCLEROSIS
     Route: 042
     Dates: start: 20100216, end: 20130221

REACTIONS (9)
  - Neuralgia [Unknown]
  - Fall [Recovered/Resolved]
  - Pain [Recovered/Resolved]
  - Memory impairment [Unknown]
  - Contusion [Unknown]
  - Poor venous access [Unknown]
  - Fatigue [Recovered/Resolved]
  - Multiple sclerosis [Unknown]
  - Multiple sclerosis relapse [Recovered/Resolved]
